FAERS Safety Report 21765295 (Version 1)
Quarter: 2022Q4

REPORT INFORMATION
  Report Type: Spontaneous
  Country: US (occurrence: None)
  Receive Date: 20221222
  Receipt Date: 20221222
  Transmission Date: 20230112
  Serious: No
  Sender: FDA-Public Use
  Company Number: US-SUPERNUS Pharmaceuticals, Inc.-SUP202201-000089

PATIENT

DRUGS (4)
  1. TOPIRAMATE [Suspect]
     Active Substance: TOPIRAMATE
     Indication: Product used for unknown indication
     Dosage: NOT PROVIDED
  2. KEPPRA [Concomitant]
     Active Substance: LEVETIRACETAM
     Dosage: NOT PROVIDED
  3. OXTELLAR XR [Concomitant]
     Active Substance: OXCARBAZEPINE
     Dosage: NOT PROVIDED
  4. LAMOTRIGINE [Concomitant]
     Active Substance: LAMOTRIGINE
     Dosage: NOT PROVIDED

REACTIONS (1)
  - Alopecia [Unknown]
